FAERS Safety Report 24596668 (Version 2)
Quarter: 2024Q4

REPORT INFORMATION
  Report Type: Spontaneous
  Country: US (occurrence: US)
  Receive Date: 20241110
  Receipt Date: 20241203
  Transmission Date: 20250115
  Serious: No
  Sender: SANOFI AVENTIS
  Company Number: US-SA-2024SA310084

PATIENT
  Age: 44 Year
  Sex: Female

DRUGS (1)
  1. FERRLECIT [Suspect]
     Active Substance: SODIUM FERRIC GLUCONATE COMPLEX
     Dosage: 62.5 MG/5 ML: WEEKLY-BIMONTHLY
     Route: 042
     Dates: start: 20241010, end: 20241010

REACTIONS (5)
  - Paraesthesia oral [Recovering/Resolving]
  - Malaise [Recovering/Resolving]
  - Throat tightness [Recovering/Resolving]
  - Abdominal pain [Recovering/Resolving]
  - Hypersensitivity [Recovering/Resolving]

NARRATIVE: CASE EVENT DATE: 20241010
